FAERS Safety Report 4296620-8 (Version None)
Quarter: 2004Q1

REPORT INFORMATION
  Report Type: 
  Country: None (occurrence: None)
  Receive Date: 20040211
  Receipt Date: 20040224
  Transmission Date: 20041129
  Serious: Yes (Other)
  Sender: FDA-Public Use
  Company Number: M2003.3173.DOC

PATIENT
  Age: 50 Year
  Sex: Female
  Weight: 61.2356 kg

DRUGS (3)
  1. TEMAZEPAM [Suspect]
     Indication: INSOMNIA
     Dosage: 1 AT BEDTIME AS NEEDED
     Dates: start: 20030219
  2. PHENOBARBITAL TAB [Concomitant]
  3. RESTORIL [Concomitant]

REACTIONS (1)
  - DRUG INEFFECTIVE [None]
